FAERS Safety Report 7589289-8 (Version None)
Quarter: 2011Q3

REPORT INFORMATION
  Report Type: 
  Country: None (occurrence: None)
  Receive Date: 20110705
  Receipt Date: 20110628
  Transmission Date: 20111222
  Serious: Yes (Death)
  Sender: FDA-Public Use
  Company Number: CN-JNJFOC-20110700304

PATIENT

DRUGS (2)
  1. MICONAZOLE NITRATE [Suspect]
     Route: 064
  2. MICONAZOLE NITRATE [Suspect]
     Indication: MATERNAL EXPOSURE DURING PREGNANCY
     Route: 064
     Dates: start: 20100621, end: 20100622

REACTIONS (1)
  - FOETAL DISORDER [None]
